FAERS Safety Report 18822631 (Version 1)
Quarter: 2021Q1

REPORT INFORMATION
  Report Type: Spontaneous
  Country: US (occurrence: US)
  Receive Date: 20210202
  Receipt Date: 20210202
  Transmission Date: 20210419
  Serious: Yes (Other)
  Sender: FDA-Public Use
  Company Number: US-PACIRA-2021000026

PATIENT
  Age: 49 Year
  Sex: Female

DRUGS (11)
  1. ENTERIC?COATED ASPIRIN 325 MG [Concomitant]
     Indication: THROMBOSIS PROPHYLAXIS
     Dosage: BID
     Route: 065
  2. VERSED [Concomitant]
     Active Substance: MIDAZOLAM HYDROCHLORIDE
     Indication: PREOPERATIVE CARE
     Dosage: 2 MG PRE?OP, 4MG PERI?OP
     Route: 065
  3. MOBIC [Concomitant]
     Active Substance: MELOXICAM
     Indication: POSTOPERATIVE CARE
     Dosage: 7.5, MULTIMODAL PROTOCOL
     Route: 065
  4. ZOFRAN [Concomitant]
     Active Substance: ONDANSETRON HYDROCHLORIDE
     Indication: POSTOPERATIVE CARE
     Dosage: 4
     Route: 065
  5. PERCOCET [Concomitant]
     Active Substance: ACETAMINOPHEN\OXYCODONE HYDROCHLORIDE
     Indication: POSTOPERATIVE CARE
     Dosage: 5 MG MULTIMODAL PROTOCOL
     Route: 065
  6. EXPAREL [Suspect]
     Active Substance: BUPIVACAINE
     Indication: POSTOPERATIVE ANALGESIA
     Dosage: 266 MG
     Route: 065
  7. GABAPENTIN. [Concomitant]
     Active Substance: GABAPENTIN
     Indication: POSTOPERATIVE CARE
     Dosage: BID FOR 2 WEEKS
     Route: 065
  8. VANC [Concomitant]
     Active Substance: VANCOMYCIN
     Indication: PREOPERATIVE CARE
     Dosage: 1 G BEFORE SURGERY
     Route: 042
  9. ANCEF [Concomitant]
     Active Substance: CEFAZOLIN SODIUM
     Indication: PREOPERATIVE CARE
     Dosage: BEFORE SURGERY, 1G
     Route: 042
  10. FENTANYL. [Concomitant]
     Active Substance: FENTANYL
     Indication: PREOPERATIVE CARE
     Dosage: 50 MCG PRE?OP, 100 MCG PERI?OP
     Route: 065
  11. OXYCONTIN [Concomitant]
     Active Substance: OXYCODONE HYDROCHLORIDE
     Indication: PREOPERATIVE CARE
     Dosage: 10 MG PRE?OP
     Route: 065

REACTIONS (1)
  - Arthrofibrosis [Unknown]
